FAERS Safety Report 5053236-3 (Version None)
Quarter: 2006Q3

REPORT INFORMATION
  Report Type: 
  Country: None (occurrence: None)
  Receive Date: 20060712
  Receipt Date: 20060630
  Transmission Date: 20061208
  Serious: Yes (Death, Hospitalization)
  Sender: FDA-Public Use
  Company Number: 163-20785-06060022

PATIENT
  Age: 83 Year
  Sex: Male
  Weight: 91.6266 kg

DRUGS (27)
  1. THALOMID [Suspect]
     Indication: MYELODYSPLASTIC SYNDROME
     Dosage: 100 MG TO 200 MG DAILY, ORAL
     Route: 048
     Dates: start: 20060414, end: 20060522
  2. VIDAZA [Suspect]
     Indication: RENAL CELL CARCINOMA STAGE UNSPECIFIED
     Dosage: 75 MG/M2, SUBCUTANEOUS
     Route: 058
     Dates: start: 20060101
  3. PREVACID [Concomitant]
  4. COMPAZINE [Concomitant]
  5. LEUKINE [Concomitant]
  6. VIDAZA [Concomitant]
  7. LASIX [Concomitant]
  8. DIFLUCAN [Concomitant]
  9. MECLIZINE HYDROCHLORIDE (MECLOZINE HYDROCHLORIDE) (TABLETS) [Concomitant]
  10. ACETAMINOPHEN [Concomitant]
  11. DIPHENHYDRAMINE HYDROCHLORIDE (DIPHENHYDRAMINE HYDROCHLORIDE) (CAPSULE [Concomitant]
  12. CODICLEAR (CODICLEAR) (SYRUP) [Concomitant]
  13. MILK OF MAGNESIA (MAGNESIUM HYDROXIDE) (SUSPENSION) [Concomitant]
  14. LOPERAMIDE HYDROCHLORIDE [Concomitant]
  15. ACETAMINOPHEN [Concomitant]
  16. TYLENOL W/ CODEINE [Concomitant]
  17. NITROGLYCERIN (GLYCERYL TRINITRATE) (CAPSULES) [Concomitant]
  18. NITROLINGUAL (GLYCERYL TRINITRATE) [Concomitant]
  19. COMBIVENT (COMBIVENT) (AEROSOL FOR INHALATION) [Concomitant]
  20. VICODIN [Concomitant]
  21. PROSOM (ESTAZOLAM) [Concomitant]
  22. IMDUR [Concomitant]
  23. COREG [Concomitant]
  24. OCUVITE (OCUVITE) (TABLETS) [Concomitant]
  25. NYSTATIN (NYSTATIN) (SUSPENSION) [Concomitant]
  26. MEGACE [Concomitant]
  27. LAXATIVES (LAXATIVES) [Concomitant]

REACTIONS (3)
  - CONSTIPATION [None]
  - LETHARGY [None]
  - MENTAL STATUS CHANGES [None]
